FAERS Safety Report 13132768 (Version 3)
Quarter: 2017Q1

REPORT INFORMATION
  Report Type: Report from Study
  Country: GB (occurrence: GB)
  Receive Date: 20170120
  Receipt Date: 20170215
  Transmission Date: 20170428
  Serious: Yes (Hospitalization, Other)
  Sender: FDA-Public Use
  Company Number: GB-BRISTOL-MYERS SQUIBB COMPANY-BMS-2017-002417

PATIENT
  Sex: Female

DRUGS (1)
  1. ABATACEPT [Suspect]
     Active Substance: ABATACEPT
     Indication: RHEUMATOID ARTHRITIS
     Dosage: 125 MG, QWK
     Route: 058
     Dates: start: 20160316

REACTIONS (7)
  - Device malfunction [Unknown]
  - Drug ineffective [Unknown]
  - Oral surgery [Unknown]
  - Abscess drainage [Unknown]
  - Hospitalisation [Unknown]
  - Arthritis [Unknown]
  - Pharyngeal abscess [Unknown]
